FAERS Safety Report 17076310 (Version 2)
Quarter: 2020Q1

REPORT INFORMATION
  Report Type: Spontaneous
  Country: GB (occurrence: GB)
  Receive Date: 20191126
  Receipt Date: 20200117
  Transmission Date: 20200409
  Serious: Yes (Other)
  Sender: FDA-Public Use
  Company Number: GB-SA-2019SA198321

PATIENT
  Age: 11 Month
  Sex: Male

DRUGS (17)
  1. ANTI-THYMOCYTE GLOBULIN (RABBIT) NOS [Suspect]
     Active Substance: LAPINE T-LYMPHOCYTE IMMUNE GLOBULIN
     Indication: HAEMOPHAGOCYTIC LYMPHOHISTIOCYTOSIS
  2. DEXAMETHASONE. [Concomitant]
     Active Substance: DEXAMETHASONE
     Indication: HAEMOPHAGOCYTIC LYMPHOHISTIOCYTOSIS
  3. FLUDARABINE PHOSPHATE. [Suspect]
     Active Substance: FLUDARABINE PHOSPHATE
     Indication: IMMUNOSUPPRESSANT DRUG THERAPY
     Dosage: 160 MG/M2
  4. IMMUNOGLOBULIN I.V [Concomitant]
     Active Substance: HUMAN IMMUNOGLOBULIN G
     Indication: PROPHYLAXIS
     Route: 042
  5. ETOPOSIDE. [Concomitant]
     Active Substance: ETOPOSIDE
     Indication: HAEMOPHAGOCYTIC LYMPHOHISTIOCYTOSIS
     Dosage: 2 DOSES
  6. THIOTEPA. [Suspect]
     Active Substance: THIOTEPA
     Indication: IMMUNOSUPPRESSANT DRUG THERAPY
     Dosage: 10 MG/KG
  7. TREOSULFAN [Suspect]
     Active Substance: TREOSULFAN
     Indication: HAEMOPHAGOCYTIC LYMPHOHISTIOCYTOSIS
     Dosage: 14 G/M2
  8. RITUXIMAB. [Suspect]
     Active Substance: RITUXIMAB
     Indication: HAEMOPHAGOCYTIC LYMPHOHISTIOCYTOSIS
  9. ANTI-THYMOCYTE GLOBULIN (RABBIT) NOS [Suspect]
     Active Substance: LAPINE T-LYMPHOCYTE IMMUNE GLOBULIN
     Indication: IMMUNOSUPPRESSANT DRUG THERAPY
     Dosage: 15 MG/KG
  10. FLUDARABINE PHOSPHATE. [Suspect]
     Active Substance: FLUDARABINE PHOSPHATE
     Indication: HAEMOPHAGOCYTIC LYMPHOHISTIOCYTOSIS
  11. RITUXIMAB. [Suspect]
     Active Substance: RITUXIMAB
     Indication: IMMUNOSUPPRESSANT DRUG THERAPY
     Dosage: 200 MG/M2
  12. CYCLOSPORIN A [Suspect]
     Active Substance: CYCLOSPORINE
     Indication: PROPHYLAXIS AGAINST GRAFT VERSUS HOST DISEASE
     Dosage: UNK
  13. METHOTREXATE. [Concomitant]
     Active Substance: METHOTREXATE
     Indication: HAEMOPHAGOCYTIC LYMPHOHISTIOCYTOSIS
  14. HYDROCORTISONE. [Concomitant]
     Active Substance: HYDROCORTISONE
     Indication: HAEMOPHAGOCYTIC LYMPHOHISTIOCYTOSIS
  15. ALEMTUZUMAB [Suspect]
     Active Substance: ALEMTUZUMAB
     Indication: HAEMOPHAGOCYTIC LYMPHOHISTIOCYTOSIS
     Dosage: 0.3 MG/KG (IN TOTAL)
  16. TREOSULFAN [Suspect]
     Active Substance: TREOSULFAN
     Indication: IMMUNOSUPPRESSANT DRUG THERAPY
  17. THIOTEPA. [Suspect]
     Active Substance: THIOTEPA
     Indication: HAEMOPHAGOCYTIC LYMPHOHISTIOCYTOSIS

REACTIONS (6)
  - Corona virus infection [Unknown]
  - Pneumonia [Unknown]
  - Stenotrophomonas infection [Unknown]
  - Mycobacterium abscessus infection [Unknown]
  - Respiratory syncytial virus infection [Unknown]
  - Off label use [Unknown]
